FAERS Safety Report 19224761 (Version 1)
Quarter: 2021Q2

REPORT INFORMATION
  Report Type: Spontaneous
  Country: SG (occurrence: SG)
  Receive Date: 20210506
  Receipt Date: 20210506
  Transmission Date: 20210717
  Serious: Yes (Hospitalization)
  Sender: FDA-Public Use
  Company Number: SG-AMGEN-SGPSP2021065223

PATIENT
  Age: 64 Year
  Sex: Male

DRUGS (1)
  1. XGEVA [Suspect]
     Active Substance: DENOSUMAB
     Indication: PROPHYLAXIS
     Dosage: 120 MILLIGRAM
     Route: 065

REACTIONS (5)
  - Blood parathyroid hormone increased [Unknown]
  - Blood phosphorus decreased [Unknown]
  - Hypocalcaemia [Recovering/Resolving]
  - Blood albumin decreased [Unknown]
  - Blood magnesium decreased [Unknown]
